FAERS Safety Report 6480273-4 (Version None)
Quarter: 2009Q4

REPORT INFORMATION
  Report Type: 
  Country: None (occurrence: None)
  Receive Date: 20091202
  Receipt Date: 20091117
  Transmission Date: 20100525
  Serious: Yes (Other)
  Sender: FDA-Public Use
  Company Number: 8054830

PATIENT
  Age: 30 Year
  Sex: Female

DRUGS (3)
  1. KEPPRA [Suspect]
     Indication: CONVULSION
     Dosage: 1000 MG 1/D
     Dates: start: 20091113
  2. PRENATAL VITAMINS /01549301/ [Concomitant]
  3. TYLENOL W/ CODEINE [Concomitant]

REACTIONS (5)
  - ALCOHOL USE [None]
  - DRUG EXPOSURE DURING PREGNANCY [None]
  - HAEMORRHAGE [None]
  - HEADACHE [None]
  - PLACENTAL DISORDER [None]
